FAERS Safety Report 4732567-8 (Version None)
Quarter: 2005Q3

REPORT INFORMATION
  Report Type: 
  Country: None (occurrence: None)
  Receive Date: 20050801
  Receipt Date: 20050801
  Transmission Date: 20060218
  Serious: No
  Sender: FDA-Public Use
  Company Number: None

PATIENT
  Age: 27 Year
  Sex: Female
  Weight: 60 kg

DRUGS (1)
  1. CEREBYX [Suspect]
     Indication: CONVULSION
     Dosage: 900MG   ONCE   INTRAVENOU
     Route: 042
     Dates: start: 20040605, end: 20040605

REACTIONS (1)
  - HYPOTENSION [None]
